FAERS Safety Report 7243862-5 (Version None)
Quarter: 2011Q1

REPORT INFORMATION
  Report Type: 
  Country: None (occurrence: None)
  Receive Date: 20110125
  Receipt Date: 20110120
  Transmission Date: 20110831
  Serious: Yes (Hospitalization)
  Sender: FDA-Public Use
  Company Number: A0893029A

PATIENT
  Age: 79 Year
  Sex: Female

DRUGS (4)
  1. ADVAIR [Suspect]
     Indication: ASTHMA
     Dosage: 1PUFF TWICE PER DAY
     Route: 055
     Dates: start: 20100101
  2. VENTOLIN [Concomitant]
  3. LISINOPRIL [Concomitant]
  4. BLOOD PRESSURE MEDICINES [Concomitant]

REACTIONS (5)
  - ASTHMA [None]
  - OSTEOPOROSIS [None]
  - PLEURAL EFFUSION [None]
  - DYSPNOEA [None]
  - HEART VALVE INCOMPETENCE [None]
